FAERS Safety Report 15366071 (Version 1)
Quarter: 2018Q3

REPORT INFORMATION
  Report Type: Spontaneous
  Country: US (occurrence: US)
  Receive Date: 20180831
  Receipt Date: 20180831
  Transmission Date: 20181010
  Serious: Yes (Hospitalization)
  Sender: FDA-Public Use
  Company Number: None

PATIENT
  Age: 10 Year
  Sex: Female
  Weight: 47.4 kg

DRUGS (6)
  1. VINCRISTINE SULFATE. [Suspect]
     Active Substance: VINCRISTINE SULFATE
     Dates: end: 20180809
  2. CYTARABINE. [Suspect]
     Active Substance: CYTARABINE
     Dates: end: 20180716
  3. PREDNISONE. [Suspect]
     Active Substance: PREDNISONE
     Dates: end: 20180815
  4. DAUNORUBICIN [Suspect]
     Active Substance: DAUNORUBICIN
     Dates: end: 20180809
  5. METHOTREXATE. [Suspect]
     Active Substance: METHOTREXATE
     Dates: end: 20180816
  6. ONCASPAR [Suspect]
     Active Substance: PEGASPARGASE
     Dates: end: 20180722

REACTIONS (7)
  - Hepatorenal syndrome [None]
  - Hepatomegaly [None]
  - Abdominal distension [None]
  - Hepatic failure [None]
  - Hepatic steatosis [None]
  - Liver injury [None]
  - Ascites [None]

NARRATIVE: CASE EVENT DATE: 20180814
